FAERS Safety Report 7892158-7 (Version None)
Quarter: 2011Q4

REPORT INFORMATION
  Report Type: 
  Country: None (occurrence: None)
  Receive Date: 20111103
  Receipt Date: 20111031
  Transmission Date: 20120403
  Serious: No
  Sender: FDA-Public Use
  Company Number: US-AMGEN-USASP2011032429

PATIENT
  Age: 63 Year
  Sex: Male

DRUGS (5)
  1. GEMFIBROZIL [Concomitant]
     Dosage: UNK
     Dates: start: 20060108
  2. DOXYCYCLINE [Concomitant]
     Dosage: UNK
     Dates: start: 20060108
  3. LISINOPRIL [Concomitant]
     Dosage: UNK
     Dates: start: 20060801
  4. PRAVASTATIN [Concomitant]
     Dosage: UNK
     Dates: start: 20060108
  5. ENBREL [Suspect]
     Indication: PSORIASIS
     Dosage: 50 MG, 2 TIMES/WK
     Route: 058
     Dates: start: 20110609, end: 20110808

REACTIONS (5)
  - RASH [None]
  - SCAB [None]
  - DRUG INEFFECTIVE [None]
  - DRY SKIN [None]
  - SKIN EXFOLIATION [None]
